FAERS Safety Report 4842688-7 (Version None)
Quarter: 2005Q4

REPORT INFORMATION
  Report Type: 
  Country: None (occurrence: None)
  Receive Date: 20051201
  Receipt Date: 20050928
  Transmission Date: 20060501
  Serious: Yes (Life-Threatening, Hospitalization)
  Sender: FDA-Public Use
  Company Number: US-BRISTOL-MYERS SQUIBB COMPANY-13125794

PATIENT
  Age: 48 Year
  Sex: Female

DRUGS (6)
  1. CISPLATIN [Suspect]
     Indication: GASTRIC CANCER
     Route: 042
     Dates: start: 20041215, end: 20050706
  2. TS-1 [Suspect]
     Indication: GASTRIC CANCER
     Route: 048
     Dates: start: 20050706, end: 20050811
  3. ALBUTEROL [Concomitant]
     Indication: ASTHMA
     Route: 055
     Dates: start: 20010101
  4. ZOFRAN [Concomitant]
     Indication: NAUSEA
     Route: 042
     Dates: start: 20041215
  5. ZOFRAN [Concomitant]
     Route: 048
     Dates: start: 20040915
  6. REGLAN [Concomitant]
     Indication: NAUSEA
     Route: 048
     Dates: start: 20050712

REACTIONS (3)
  - BLOOD POTASSIUM INCREASED [None]
  - HAEMOGLOBIN DECREASED [None]
  - PERICARDIAL EFFUSION [None]
